FAERS Safety Report 15492868 (Version 7)
Quarter: 2018Q4

REPORT INFORMATION
  Report Type: Spontaneous
  Country: CA (occurrence: CA)
  Receive Date: 20181012
  Receipt Date: 20181228
  Transmission Date: 20190205
  Serious: Yes (Other)
  Sender: FDA-Public Use
  Company Number: CA-CELLTRION INC.-2018CA022770

PATIENT

DRUGS (7)
  1. METRONIDAZOLE. [Concomitant]
     Active Substance: METRONIDAZOLE
     Dosage: UNK
  2. INFLECTRA [Suspect]
     Active Substance: INFLIXIMAB-DYYB
     Dosage: 5 MG/KG, (Q 0, 2, 6WEEKS, THEN EVERY 8WEEKS
     Route: 042
     Dates: start: 20181218
  3. APO-HYDROXYQUINE [Concomitant]
     Active Substance: HYDROXYCHLOROQUINE SULFATE
     Dosage: UNK
     Dates: end: 20181018
  4. METHOTREXATE. [Concomitant]
     Active Substance: METHOTREXATE
     Dosage: UNK
     Dates: start: 20150923
  5. INFLECTRA [Suspect]
     Active Substance: INFLIXIMAB-DYYB
     Dosage: 5 MG/KG, (Q 0, 2, 6WEEKS, THEN EVERY 8WEEKS
     Route: 042
     Dates: start: 20180928
  6. INFLECTRA [Suspect]
     Active Substance: INFLIXIMAB-DYYB
     Indication: CROHN^S DISEASE
     Dosage: 5 MG/KG, (Q 0, 2, 6WEEKS, THEN EVERY 8WEEKS
     Route: 042
     Dates: start: 20180914
  7. INFLECTRA [Suspect]
     Active Substance: INFLIXIMAB-DYYB
     Dosage: 5 MG/KG, (Q 0, 2, 6WEEKS, THEN EVERY 8WEEKS
     Route: 042
     Dates: start: 20181026

REACTIONS (8)
  - Feeling cold [Unknown]
  - Fatigue [Unknown]
  - Female genital tract fistula [Unknown]
  - Hepatic enzyme increased [Unknown]
  - Blood pressure fluctuation [Unknown]
  - Bradycardia [Unknown]
  - Drug ineffective [Not Recovered/Not Resolved]
  - Condition aggravated [Unknown]

NARRATIVE: CASE EVENT DATE: 2018
